FAERS Safety Report 5723202-0 (Version None)
Quarter: 2008Q2

REPORT INFORMATION
  Report Type: 
  Country: None (occurrence: None)
  Receive Date: 20080425
  Receipt Date: 20080417
  Transmission Date: 20081010
  Serious: Yes (Hospitalization)
  Sender: FDA-Public Use
  Company Number: 2008SP006991

PATIENT
  Age: 52 Year
  Sex: Male
  Weight: 86.5 kg

DRUGS (1)
  1. TEMODAL [Suspect]
     Indication: GLIOBLASTOMA
     Dosage: 150 MG; QD;
     Dates: start: 20080212, end: 20080323

REACTIONS (3)
  - RENAL FAILURE [None]
  - RENAL TUBULAR NECROSIS [None]
  - URINE OUTPUT INCREASED [None]
